FAERS Safety Report 5227172-3 (Version None)
Quarter: 2007Q1

REPORT INFORMATION
  Report Type: 
  Country: None (occurrence: None)
  Receive Date: 20070202
  Receipt Date: 20070125
  Transmission Date: 20070707
  Serious: Yes (Disabling)
  Sender: FDA-Public Use
  Company Number: BE-GLAXOSMITHKLINE-B0456678A

PATIENT
  Age: 38 Year
  Sex: Male

DRUGS (1)
  1. MALARONE [Suspect]
     Indication: MALARIA PROPHYLAXIS
     Dosage: 1TAB PER DAY
     Dates: start: 20070107, end: 20070121

REACTIONS (5)
  - INFLUENZA LIKE ILLNESS [None]
  - NIGHT SWEATS [None]
  - PHARYNGOLARYNGEAL PAIN [None]
  - PYREXIA [None]
  - STOMATITIS [None]
